FAERS Safety Report 11225246 (Version 3)
Quarter: 2015Q3

REPORT INFORMATION
  Report Type: Report from Study
  Country: KR (occurrence: KR)
  Receive Date: 20150629
  Receipt Date: 20150720
  Transmission Date: 20151125
  Serious: Yes (Death, Hospitalization)
  Sender: FDA-Public Use
  Company Number: KR-PFIZER INC-2015209729

PATIENT
  Age: 58 Year
  Sex: Female
  Weight: 46 kg

DRUGS (8)
  1. AXITINIB [Suspect]
     Active Substance: AXITINIB
     Indication: RENAL CELL CARCINOMA
     Dosage: 5 MG, 2X/DAY, CYCLIC
     Route: 048
     Dates: start: 20150526, end: 20150622
  2. MATRIFEN [Concomitant]
     Active Substance: FENTANYL
     Indication: BACK PAIN
     Dosage: UNK
     Route: 062
     Dates: start: 20150414, end: 20150630
  3. INHIBACE [Concomitant]
     Active Substance: CILAZAPRIL ANHYDROUS
     Indication: HYPERTENSION
     Dosage: UNK
     Route: 048
     Dates: start: 20150602, end: 20150622
  4. NORFERRO [Concomitant]
     Indication: ANAEMIA PROPHYLAXIS
     Dosage: UNK
     Route: 048
     Dates: start: 20131112, end: 20150622
  5. MAGNESIUM OXIDE. [Concomitant]
     Active Substance: MAGNESIUM OXIDE
     Indication: CONSTIPATION
     Dosage: UNK
     Route: 048
     Dates: start: 20150406, end: 20150622
  6. LIPINON [Concomitant]
     Indication: BLOOD CHOLESTEROL INCREASED
     Dosage: UNK
     Route: 048
     Dates: start: 20131112, end: 20150622
  7. JURNISTA [Concomitant]
     Active Substance: HYDROMORPHONE HYDROCHLORIDE
     Indication: BACK PAIN
     Dosage: UNK
     Route: 048
     Dates: start: 20150514, end: 20150622
  8. CINALONG [Concomitant]
     Indication: HYPERTENSION
     Dosage: UNK
     Route: 048
     Dates: start: 20150602, end: 20150622

REACTIONS (3)
  - Blood bilirubin increased [Recovering/Resolving]
  - Disease progression [Fatal]
  - Renal cell carcinoma [Fatal]

NARRATIVE: CASE EVENT DATE: 20150622
